FAERS Safety Report 16765537 (Version 6)
Quarter: 2021Q1

REPORT INFORMATION
  Report Type: Spontaneous
  Country: US (occurrence: US)
  Receive Date: 20190903
  Receipt Date: 20210324
  Transmission Date: 20210419
  Serious: Yes (Other)
  Sender: FDA-Public Use
  Company Number: US-GILEAD-2019-0425749

PATIENT
  Age: 51 Year
  Sex: Male
  Weight: 74.39 kg

DRUGS (35)
  1. AMOXICILLIN + CLAV. POTASSIUM [Concomitant]
     Active Substance: AMOXICILLIN\CLAVULANATE POTASSIUM
  2. BACTROBAN [Concomitant]
     Active Substance: MUPIROCIN\MUPIROCIN CALCIUM
  3. MELOXICAM. [Concomitant]
     Active Substance: MELOXICAM
  4. AMITRIPTYLINE [Concomitant]
     Active Substance: AMITRIPTYLINE
  5. REYATAZ [Concomitant]
     Active Substance: ATAZANAVIR SULFATE
  6. SODIUM CHLORIDE. [Concomitant]
     Active Substance: SODIUM CHLORIDE
  7. ATRIPLA [Suspect]
     Active Substance: EFAVIRENZ\EMTRICITABINE\TENOFOVIR DISOPROXIL FUMARATE
     Dosage: UNK
     Route: 048
     Dates: start: 20140729, end: 20180615
  8. VIREAD [Suspect]
     Active Substance: TENOFOVIR DISOPROXIL FUMARATE
     Dosage: UNK
     Route: 065
     Dates: start: 20131210, end: 20131213
  9. NORVASC [Concomitant]
     Active Substance: AMLODIPINE BESYLATE
  10. ACETAMINOPHEN. [Concomitant]
     Active Substance: ACETAMINOPHEN
  11. CRIXIVAN [Concomitant]
     Active Substance: INDINAVIR SULFATE
  12. VIREAD [Suspect]
     Active Substance: TENOFOVIR DISOPROXIL FUMARATE
     Indication: HIV INFECTION
     Dosage: UNK
     Route: 065
     Dates: start: 20131031, end: 20131104
  13. TAMIFLU [Concomitant]
     Active Substance: OSELTAMIVIR PHOSPHATE
  14. ACYCLOVIR [ACICLOVIR] [Concomitant]
     Active Substance: ACYCLOVIR
  15. PREDNISOLONE. [Concomitant]
     Active Substance: PREDNISOLONE
  16. VIDEX [Concomitant]
     Active Substance: DIDANOSINE
  17. WELCHOL [Concomitant]
     Active Substance: COLESEVELAM HYDROCHLORIDE
  18. ATRIPLA [Suspect]
     Active Substance: EFAVIRENZ\EMTRICITABINE\TENOFOVIR DISOPROXIL FUMARATE
     Indication: HIV INFECTION
     Dosage: UNK
     Route: 048
     Dates: start: 20140729, end: 201902
  19. DESYREL [Concomitant]
     Active Substance: TRAZODONE HYDROCHLORIDE
  20. TRIUMEQ [Concomitant]
     Active Substance: ABACAVIR SULFATE\DOLUTEGRAVIR SODIUM\LAMIVUDINE
  21. CLONAZEPAM. [Concomitant]
     Active Substance: CLONAZEPAM
  22. TRUVADA [Suspect]
     Active Substance: EMTRICITABINE\TENOFOVIR DISOPROXIL FUMARATE
     Dosage: UNK
     Route: 048
     Dates: start: 20130215, end: 20140729
  23. NORCO [Concomitant]
     Active Substance: ACETAMINOPHEN\HYDROCODONE BITARTRATE
  24. PHENAZOPYRIDINE. [Concomitant]
     Active Substance: PHENAZOPYRIDINE
  25. NOVIRAL [Concomitant]
  26. SUSTIVA [Concomitant]
     Active Substance: EFAVIRENZ
  27. NAPROXEN. [Concomitant]
     Active Substance: NAPROXEN
  28. CIPROFLOXACIN. [Concomitant]
     Active Substance: CIPROFLOXACIN
  29. CEFUROXIME. [Concomitant]
     Active Substance: CEFUROXIME
  30. TRAZODONE [Concomitant]
     Active Substance: TRAZODONE HYDROCHLORIDE
  31. ASPIRIN [ACETYLSALICYLIC ACID] [Concomitant]
     Active Substance: ASPIRIN
  32. ATORVASTATIN [Concomitant]
     Active Substance: ATORVASTATIN
  33. TRUVADA [Suspect]
     Active Substance: EMTRICITABINE\TENOFOVIR DISOPROXIL FUMARATE
     Indication: HIV INFECTION
     Dosage: UNK
     Route: 048
     Dates: start: 2014, end: 2019
  34. PENICILLIN [BENZYLPENICILLIN] [Concomitant]
     Active Substance: PENICILLIN G
  35. EPIVIR [Concomitant]
     Active Substance: LAMIVUDINE

REACTIONS (9)
  - Emotional distress [Unknown]
  - Economic problem [Unknown]
  - Hand fracture [Recovered/Resolved]
  - Tooth loss [Unknown]
  - Bone loss [Not Recovered/Not Resolved]
  - Bone density decreased [Recovered/Resolved]
  - Anhedonia [Unknown]
  - Anxiety [Unknown]
  - Pain [Unknown]

NARRATIVE: CASE EVENT DATE: 20131026
